FAERS Safety Report 7638908-6 (Version None)
Quarter: 2011Q3

REPORT INFORMATION
  Report Type: 
  Country: None (occurrence: None)
  Receive Date: 20110725
  Receipt Date: 20110725
  Transmission Date: 20111222
  Serious: Yes (Other)
  Sender: FDA-Public Use
  Company Number: None

PATIENT
  Sex: Male
  Weight: 79.5 kg

DRUGS (1)
  1. PHENTERMINE HYDROCHLORIDE [Suspect]
     Indication: DECREASED APPETITE
     Dosage: 37.5MG BID ORAL
     Route: 048
     Dates: start: 20110512, end: 20110520

REACTIONS (1)
  - DRUG EFFECT DECREASED [None]
